FAERS Safety Report 5557608-X (Version None)
Quarter: 2007Q4

REPORT INFORMATION
  Report Type: 
  Country: None (occurrence: None)
  Receive Date: 20071214
  Receipt Date: 20071207
  Transmission Date: 20080405
  Serious: Yes (Hospitalization, Other)
  Sender: FDA-Public Use
  Company Number: B0460575A

PATIENT
  Age: 19 Year
  Sex: Male
  Weight: 65 kg

DRUGS (1)
  1. MALARONE [Suspect]
     Indication: MALARIA PROPHYLAXIS
     Dosage: 1TAB PER DAY
     Route: 048
     Dates: start: 20060701, end: 20060701

REACTIONS (2)
  - CHEST PAIN [None]
  - OESOPHAGEAL ULCER [None]
